FAERS Safety Report 4878720-4 (Version None)
Quarter: 2006Q1

REPORT INFORMATION
  Report Type: 
  Country: None (occurrence: None)
  Receive Date: 20060112
  Receipt Date: 20051229
  Transmission Date: 20060701
  Serious: Yes (Hospitalization)
  Sender: FDA-Public Use
  Company Number: FR-JNJFOC-20060101877

PATIENT
  Age: 50 Year
  Sex: Female

DRUGS (4)
  1. TOPALGIC [Suspect]
     Route: 042
     Dates: start: 20051003, end: 20051004
  2. PROFENID [Suspect]
     Route: 042
     Dates: start: 20051003, end: 20051004
  3. PERFALGAN [Suspect]
     Route: 042
  4. DESFLURANE [Suspect]
     Indication: ANAESTHESIA
     Route: 065

REACTIONS (5)
  - CYTOLYTIC HEPATITIS [None]
  - DEPRESSED LEVEL OF CONSCIOUSNESS [None]
  - HEPATIC FAILURE [None]
  - LEFT VENTRICULAR FAILURE [None]
  - RESPIRATORY FAILURE [None]
